FAERS Safety Report 15596990 (Version 2)
Quarter: 2018Q4

REPORT INFORMATION
  Report Type: Spontaneous
  Country: US (occurrence: US)
  Receive Date: 20181108
  Receipt Date: 20181203
  Transmission Date: 20190205
  Serious: Yes (Hospitalization, Other)
  Sender: FDA-Public Use
  Company Number: PHEH2018US046402

PATIENT
  Sex: Male

DRUGS (2)
  1. AFINITOR [Suspect]
     Active Substance: EVEROLIMUS
     Indication: RENAL CANCER
     Dosage: 5 MG, QD
     Route: 048
     Dates: start: 20180823
  2. LENVIMA [Suspect]
     Active Substance: LENVATINIB
     Indication: RENAL CANCER
     Dosage: 14 MG, QD
     Route: 048
     Dates: start: 20180823

REACTIONS (9)
  - Feeding disorder [Unknown]
  - Asthenia [Unknown]
  - Cough [Unknown]
  - Metastases to kidney [Unknown]
  - Tinnitus [Unknown]
  - Ammonia increased [Recovered/Resolved]
  - Nasopharyngitis [Unknown]
  - Metastases to liver [Unknown]
  - Stomatitis [Unknown]
